FAERS Safety Report 23055507 (Version 1)
Quarter: 2023Q4

REPORT INFORMATION
  Report Type: Spontaneous
  Country: US (occurrence: None)
  Receive Date: 20231011
  Receipt Date: 20231011
  Transmission Date: 20240109
  Serious: Yes (Other)
  Sender: FDA-Public Use
  Company Number: None

PATIENT
  Sex: Female
  Weight: 83.25 kg

DRUGS (17)
  1. SULFAMETHOXAZOLE\TRIMETHOPRIM [Suspect]
     Active Substance: SULFAMETHOXAZOLE\TRIMETHOPRIM
     Indication: Urinary tract infection
     Dates: start: 20231006, end: 20231010
  2. ATENOLOL [Concomitant]
     Active Substance: ATENOLOL
  3. SYNTHROID [Concomitant]
     Active Substance: LEVOTHYROXINE SODIUM
  4. ENDOR [Concomitant]
  5. SEROQUEL [Concomitant]
     Active Substance: QUETIAPINE FUMARATE
  6. SOLIFENACIN [Concomitant]
     Active Substance: SOLIFENACIN
  7. DONEPEZIL [Concomitant]
     Active Substance: DONEPEZIL
  8. PLAVIX [Concomitant]
     Active Substance: CLOPIDOGREL BISULFATE
  9. PROTONIX [Concomitant]
     Active Substance: PANTOPRAZOLE SODIUM
  10. AMLODIPINE [Concomitant]
     Active Substance: AMLODIPINE BESYLATE
  11. sosorbide monitrite ER [Concomitant]
  12. VALSARTAN [Concomitant]
     Active Substance: VALSARTAN
  13. HYDRALAZINE [Concomitant]
     Active Substance: HYDRALAZINE HYDROCHLORIDE
  14. TYLENOL [Concomitant]
     Active Substance: ACETAMINOPHEN
  15. Glucosamine Triple Strength [Concomitant]
  16. Senekot [Concomitant]
  17. VITAMINS [Concomitant]
     Active Substance: VITAMINS

REACTIONS (3)
  - Renal impairment [None]
  - Confusional state [None]
  - Diarrhoea [None]
